FAERS Safety Report 14280424 (Version 1)
Quarter: 2017Q4

REPORT INFORMATION
  Report Type: Spontaneous
  Country: US (occurrence: None)
  Receive Date: 20171212
  Receipt Date: 20171212
  Transmission Date: 20180321
  Serious: Yes (Other)
  Sender: FDA-Public Use
  Company Number: None

PATIENT
  Age: 68 Year
  Sex: Female
  Weight: 95.25 kg

DRUGS (10)
  1. FLUOXETINE [Suspect]
     Active Substance: FLUOXETINE HYDROCHLORIDE
     Indication: DEPRESSION
     Dosage: 20 MG, 1 TABLET BY MOUTH, AFTER BREAKFAST ONCE A DAY, AS INSTRUCTED AFTER BREAKFAST
     Route: 048
     Dates: start: 20171117, end: 20171118
  2. HYDROCORTISONE. [Concomitant]
     Active Substance: HYDROCORTISONE
  3. LEVOTHYROXINE. [Concomitant]
     Active Substance: LEVOTHYROXINE
  4. LEVITIRACETAM [Concomitant]
     Active Substance: LEVETIRACETAM
  5. BENADRYL [Concomitant]
     Active Substance: DIPHENHYDRAMINE HYDROCHLORIDE
  6. METFORMIN [Concomitant]
     Active Substance: METFORMIN HYDROCHLORIDE
  7. DESMOPRESSIN [Concomitant]
     Active Substance: DESMOPRESSIN
  8. INSULIN [Concomitant]
     Active Substance: INSULIN NOS
  9. FAMOTIDINE. [Concomitant]
     Active Substance: FAMOTIDINE
  10. TYLENOL [Concomitant]
     Active Substance: ACETAMINOPHEN

REACTIONS (3)
  - Blood glucose increased [None]
  - Gait inability [None]
  - Dizziness [None]

NARRATIVE: CASE EVENT DATE: 20171117
